FAERS Safety Report 4659223-9 (Version None)
Quarter: 2005Q2

REPORT INFORMATION
  Report Type: 
  Country: None (occurrence: None)
  Receive Date: 20050511
  Receipt Date: 20050504
  Transmission Date: 20051028
  Serious: Yes (Life-Threatening, Hospitalization)
  Sender: FDA-Public Use
  Company Number: 2005AP02620

PATIENT
  Age: 26710 Day
  Sex: Male
  Weight: 79 kg

DRUGS (6)
  1. ATACAND HCT [Suspect]
     Indication: ESSENTIAL HYPERTENSION
     Dosage: 16 MG + 12.5 MG DAILY  LONG TERM
     Route: 048
     Dates: end: 20050201
  2. TENORMIN [Suspect]
     Indication: ESSENTIAL HYPERTENSION
     Dosage: LONG TERM
     Route: 048
     Dates: end: 20050201
  3. MADOPAR [Suspect]
     Indication: CEREBRAL DISORDER
     Dosage: LONG TERM
     Route: 048
     Dates: end: 20050201
  4. SYMMETREL [Suspect]
     Indication: CEREBRAL DISORDER
     Dosage: LONG TERM
     Route: 048
     Dates: end: 20050201
  5. FRUSEMIDE [Suspect]
     Indication: ESSENTIAL HYPERTENSION
     Route: 048
     Dates: start: 20041015, end: 20050201
  6. DITHIAZIDE [Suspect]
     Indication: ESSENTIAL HYPERTENSION
     Route: 048
     Dates: start: 20041115, end: 20050201

REACTIONS (6)
  - AGITATION [None]
  - DEPRESSED LEVEL OF CONSCIOUSNESS [None]
  - RENAL IMPAIRMENT [None]
  - TACHYCARDIA [None]
  - TACHYPNOEA [None]
  - TREMOR [None]
